FAERS Safety Report 6803886-6 (Version None)
Quarter: 2010Q2

REPORT INFORMATION
  Report Type: 
  Country: None (occurrence: None)
  Receive Date: 20100628
  Receipt Date: 20100628
  Transmission Date: 20101027
  Serious: Yes (Life-Threatening, Other)
  Sender: FDA-Public Use
  Company Number: None

PATIENT
  Age: 80 Year
  Sex: Female
  Weight: 60.3284 kg

DRUGS (1)
  1. LISINOPRIL [Suspect]
     Indication: HYPERTENSION
     Dosage: DAILY PO
     Route: 048
     Dates: start: 20100616, end: 20100618

REACTIONS (5)
  - CEREBROVASCULAR ACCIDENT [None]
  - OEDEMA MOUTH [None]
  - PNEUMONIA [None]
  - PULMONARY THROMBOSIS [None]
  - SWOLLEN TONGUE [None]
